FAERS Safety Report 14453705 (Version 1)
Quarter: 2018Q1

REPORT INFORMATION
  Report Type: Spontaneous
  Country: US (occurrence: US)
  Receive Date: 20180129
  Receipt Date: 20180129
  Transmission Date: 20180509
  Serious: No
  Sender: FDA-Public Use
  Company Number: US-GLAXOSMITHKLINE-US2018012409

PATIENT
  Age: 78 Year
  Sex: Female

DRUGS (6)
  1. LOSARTAN. [Concomitant]
     Active Substance: LOSARTAN
  2. ALBUTEROL INHALER [Concomitant]
     Active Substance: ALBUTEROL
  3. CELEBREX [Concomitant]
     Active Substance: CELECOXIB
  4. LETROZOLE. [Concomitant]
     Active Substance: LETROZOLE
  5. AMLODIPINE [Concomitant]
     Active Substance: AMLODIPINE BESYLATE
  6. ADVAIR DISKUS [Suspect]
     Active Substance: FLUTICASONE PROPIONATE\SALMETEROL XINAFOATE
     Indication: ASTHMA
     Dosage: UNK UNK, BID
     Route: 055
     Dates: start: 2008

REACTIONS (5)
  - Dyspnoea [Recovering/Resolving]
  - Influenza [Unknown]
  - Asthma [Recovering/Resolving]
  - Gait disturbance [Unknown]
  - Drug ineffective [Unknown]

NARRATIVE: CASE EVENT DATE: 20180115
